FAERS Safety Report 21177449 (Version 1)
Quarter: 2022Q3

REPORT INFORMATION
  Report Type: Spontaneous
  Country: IT (occurrence: IT)
  Receive Date: 20220805
  Receipt Date: 20220805
  Transmission Date: 20221027
  Serious: Yes (Hospitalization)
  Sender: FDA-Public Use
  Company Number: None

PATIENT
  Age: 20 Year
  Sex: Female
  Weight: 90 kg

DRUGS (4)
  1. OLANZAPINE [Suspect]
     Active Substance: OLANZAPINE
     Indication: Personality disorder
     Dosage: 30 MG TOTAL, UNIT DOSE : 300MG, DURATION : 6 YEARS
     Route: 065
     Dates: start: 2016, end: 20220524
  2. DELORAZEPAM [Suspect]
     Active Substance: DELORAZEPAM
     Indication: Personality disorder
     Dosage: TOTAL 3 MG, UNIT DOSE : 3 MG, DURATION :6 YERAS
     Route: 065
     Dates: start: 2016, end: 20220524
  3. TALOFEN [Suspect]
     Active Substance: PROMAZINE HYDROCHLORIDE
     Indication: Personality disorder
     Dosage: TOTAL 180 MG, UNIT DOSE : 180MG,  DURATION :6 YEARS
     Route: 065
     Dates: start: 2016, end: 20220524
  4. RIVOTRIL [Suspect]
     Active Substance: CLONAZEPAM
     Indication: Personality disorder
     Dosage: 40 MG TOTAL,UNIT DOSE :  40MG, DURATION : 6 YEARS
     Route: 065
     Dates: start: 2016, end: 20220524

REACTIONS (2)
  - Intentional overdose [Recovered/Resolved]
  - Intentional self-injury [Recovered/Resolved]

NARRATIVE: CASE EVENT DATE: 20220524
